FAERS Safety Report 23433148 (Version 2)
Quarter: 2024Q1

REPORT INFORMATION
  Report Type: Spontaneous
  Country: GB (occurrence: GB)
  Receive Date: 20240123
  Receipt Date: 20240201
  Transmission Date: 20240410
  Serious: Yes (Hospitalization, Other)
  Sender: FDA-Public Use
  Company Number: GB-BAXTER-2024BAX011070

PATIENT
  Sex: Female

DRUGS (1)
  1. CALCIUM CL\DEXTROSE\MAGNESIUM CL\SODIUM BICAR\SODIUM CL\SODIUM LACT [Suspect]
     Active Substance: CALCIUM CHLORIDE\DEXTROSE MONOHYDRATE\MAGNESIUM CHLORIDE\SODIUM BICARBONATE\SODIUM CHLORIDE\SODIUM L
     Dosage: 1 UNIT, 7 TIMES PER WEEK
     Route: 033

REACTIONS (6)
  - Lower respiratory tract infection [Unknown]
  - Oxygen saturation decreased [Unknown]
  - Sepsis [Unknown]
  - Hypervolaemia [Unknown]
  - Peritonitis [Unknown]
  - Peritoneal cloudy effluent [Unknown]
